FAERS Safety Report 4827851-3 (Version None)
Quarter: 2005Q4

REPORT INFORMATION
  Report Type: 
  Country: None (occurrence: None)
  Receive Date: 20051114
  Receipt Date: 20051114
  Transmission Date: 20060501
  Serious: Yes (Life-Threatening, Hospitalization)
  Sender: FDA-Public Use
  Company Number: None

PATIENT
  Age: 94 Year
  Sex: Female

DRUGS (1)
  1. PRIMAXIN [Suspect]
     Indication: SEPTIC SHOCK
     Dosage: 250 MG   Q6H   IV
     Route: 042
     Dates: start: 20050912, end: 20050922

REACTIONS (1)
  - THROMBOCYTOPENIA [None]
